FAERS Safety Report 5472474-9 (Version None)
Quarter: 2007Q4

REPORT INFORMATION
  Report Type: 
  Country: None (occurrence: None)
  Receive Date: 20071001
  Receipt Date: 20070919
  Transmission Date: 20080405
  Serious: Yes (Hospitalization)
  Sender: FDA-Public Use
  Company Number: CH-BRISTOL-MYERS SQUIBB COMPANY-13922349

PATIENT
  Age: 47 Year
  Sex: Female

DRUGS (1)
  1. TRITTICO [Suspect]
     Indication: DEPRESSION
     Dosage: 50MG02-AUG-2006 TO 31-AUG-2006,75MG 01-SEP-2006 TO 30-SEP-2006,100MG 01-OCT-2006 TO 19-OCT-2006
     Route: 048
     Dates: start: 20061020, end: 20061101

REACTIONS (3)
  - ABDOMINAL PAIN [None]
  - NAUSEA [None]
  - PANCREATIC ENZYMES INCREASED [None]
